FAERS Safety Report 6300527-1 (Version None)
Quarter: 2009Q3

REPORT INFORMATION
  Report Type: 
  Country: None (occurrence: None)
  Receive Date: 20090806
  Receipt Date: 20090305
  Transmission Date: 20100115
  Serious: No
  Sender: FDA-Public Use
  Company Number: US-ABBOTT-09P-163-0502535-00

PATIENT
  Age: 32 Year
  Sex: Male
  Weight: 108.96 kg

DRUGS (5)
  1. DEPAKOTE ER [Suspect]
     Indication: PETIT MAL EPILEPSY
     Route: 048
     Dates: start: 19930101
  2. DEPAKOTE ER [Suspect]
     Dosage: 500 MG X 2 QD, FROM MEDICAL CLINIC IN JAPAN.
     Route: 048
     Dates: end: 20081101
  3. DEPAKOTE ER [Suspect]
     Dosage: 250 MG X 4 QD
     Route: 048
     Dates: start: 20081101
  4. SIMVASTATIN [Concomitant]
     Indication: BLOOD CHOLESTEROL INCREASED
     Route: 048
  5. FISH OIL [Concomitant]
     Indication: DRUG USE FOR UNKNOWN INDICATION

REACTIONS (5)
  - ANTICONVULSANT DRUG LEVEL DECREASED [None]
  - DIZZINESS [None]
  - DYSGEUSIA [None]
  - FEELING ABNORMAL [None]
  - UNEVALUABLE EVENT [None]
